FAERS Safety Report 18844844 (Version 1)
Quarter: 2021Q1

REPORT INFORMATION
  Report Type: Report from Study
  Country: US (occurrence: US)
  Receive Date: 20210203
  Receipt Date: 20210203
  Transmission Date: 20210419
  Serious: No
  Sender: FDA-Public Use
  Company Number: US-EXELIXIS-CABO-20030867

PATIENT
  Sex: Male

DRUGS (1)
  1. CABOMETYX [Suspect]
     Active Substance: CABOZANTINIB S-MALATE
     Indication: HEPATIC CANCER
     Dosage: 60 MG, QD, AROUND NOON WITHOUT FOOD 2 HOURS BEFORE AND ONE HOUR
     Dates: start: 20200531

REACTIONS (4)
  - Blood sodium decreased [Unknown]
  - Malignant neoplasm progression [Unknown]
  - Pruritus [Recovering/Resolving]
  - Blood pressure increased [Unknown]
